FAERS Safety Report 5289815-8 (Version None)
Quarter: 2007Q2

REPORT INFORMATION
  Report Type: 
  Country: None (occurrence: None)
  Receive Date: 20070406
  Receipt Date: 20070328
  Transmission Date: 20071010
  Serious: Yes (Hospitalization)
  Sender: FDA-Public Use
  Company Number: CA-BOEHRINGER INGELHEIM PHARMACEUTICALS, INC.-2007-CN-00282CN

PATIENT
  Sex: Male

DRUGS (1)
  1. TIPRANAVIR + RITONAVIR CO-ADMIN [Suspect]

REACTIONS (2)
  - CHOLELITHIASIS [None]
  - NEPHROLITHIASIS [None]
